FAERS Safety Report 9422633 (Version 1)
Quarter: 2013Q3

REPORT INFORMATION
  Report Type: Spontaneous
  Country: US (occurrence: US)
  Receive Date: 20130726
  Receipt Date: 20130726
  Transmission Date: 20140515
  Serious: No
  Sender: FDA-Public Use
  Company Number: US-009507513-1307USA010565

PATIENT
  Sex: Male

DRUGS (4)
  1. EMEND FOR INJECTION [Suspect]
     Indication: CHEMOTHERAPY
     Dosage: 150 MG, ONCE
     Route: 042
  2. BENADRYL [Concomitant]
  3. PEPCID [Concomitant]
  4. ALOXI [Concomitant]

REACTIONS (3)
  - Tachycardia [Recovered/Resolved]
  - Flushing [Recovered/Resolved]
  - Dyspnoea [Recovered/Resolved]
